FAERS Safety Report 8043598-7 (Version None)
Quarter: 2012Q1

REPORT INFORMATION
  Report Type: 
  Country: None (occurrence: None)
  Receive Date: 20120112
  Receipt Date: 20120109
  Transmission Date: 20120608
  Serious: Yes (Hospitalization)
  Sender: FDA-Public Use
  Company Number: US-CELGENEUS-163-21880-12010897

PATIENT
  Sex: Male

DRUGS (9)
  1. MORPHINE SULFATE [Concomitant]
     Dosage: 30 MILLIGRAM
     Route: 065
  2. FENTANYL [Concomitant]
     Dosage: 100 MICROGRAM
     Route: 065
  3. RESTORIL [Concomitant]
     Dosage: 7.5 MILLIGRAM
     Route: 065
  4. MORPHINE SULFATE [Concomitant]
     Dosage: 500 MILLIGRAM
     Route: 065
  5. REVLIMID [Suspect]
     Indication: MULTIPLE MYELOMA
     Dosage: 10 MILLIGRAM
     Route: 048
     Dates: start: 20081017
  6. ONDANSETRON [Concomitant]
     Dosage: 5 MILLIGRAM
     Route: 065
  7. PROCRIT [Concomitant]
     Dosage: 40,000 UNITS/ML
     Route: 065
  8. NEURONTIN [Concomitant]
     Dosage: 300 MILLIGRAM
     Route: 065
  9. DECADRON [Concomitant]
     Dosage: .5 MILLIGRAM
     Route: 065

REACTIONS (2)
  - ERYTHEMA [None]
  - OEDEMA PERIPHERAL [None]
